FAERS Safety Report 9443179 (Version 1)
Quarter: 2013Q3

REPORT INFORMATION
  Report Type: Spontaneous
  Country: GB (occurrence: GB)
  Receive Date: 20130806
  Receipt Date: 20130806
  Transmission Date: 20140515
  Serious: Yes (Other)
  Sender: FDA-Public Use
  Company Number: GB-ASTRAZENECA-2013SE57710

PATIENT
  Age: 50 Year
  Sex: Male
  Weight: 90 kg

DRUGS (5)
  1. LOSEC [Suspect]
     Route: 048
     Dates: start: 20100101
  2. DEPIXOL [Concomitant]
     Dosage: FLUPENTHIXOL DECANOATE
  3. DEPIXOL [Concomitant]
     Dosage: FLUPENTHIXOL HYDROCHLORIDE
  4. DEPIXOL [Concomitant]
     Dosage: FLUPENTHIXOL DECANOATE
  5. DEPIXOL [Concomitant]
     Dosage: FLUPENTHIXOL HYDROCHLORIDE

REACTIONS (1)
  - Cholelithiasis [Not Recovered/Not Resolved]
